FAERS Safety Report 7238332-4 (Version None)
Quarter: 2011Q1

REPORT INFORMATION
  Report Type: 
  Country: None (occurrence: None)
  Receive Date: 20110121
  Receipt Date: 20110112
  Transmission Date: 20110831
  Serious: Yes (Other)
  Sender: FDA-Public Use
  Company Number: NL-ASTRAZENECA-2011SE01897

PATIENT
  Sex: Male

DRUGS (4)
  1. SEROQUEL XR [Suspect]
     Route: 048
  2. SEROQUEL XR [Suspect]
     Route: 048
  3. RIVOTRIL [Concomitant]
  4. LITHIUM [Concomitant]

REACTIONS (5)
  - INCONTINENCE [None]
  - DISORIENTATION [None]
  - AMNESIA [None]
  - MUSCULAR WEAKNESS [None]
  - BALANCE DISORDER [None]
